FAERS Safety Report 7828368-4 (Version None)
Quarter: 2011Q4

REPORT INFORMATION
  Report Type: 
  Country: None (occurrence: None)
  Receive Date: 20111020
  Receipt Date: 20111017
  Transmission Date: 20120403
  Serious: No
  Sender: FDA-Public Use
  Company Number: US-PFIZER INC-2011249352

PATIENT
  Sex: Female

DRUGS (2)
  1. IBUPROFEN (ADVIL) [Suspect]
     Dosage: UNK
  2. IBUPROFEN [Suspect]
     Dosage: UNK

REACTIONS (2)
  - SWELLING FACE [None]
  - PARAESTHESIA [None]
